FAERS Safety Report 24334540 (Version 1)
Quarter: 2024Q3

REPORT INFORMATION
  Report Type: Spontaneous
  Country: TR (occurrence: TR)
  Receive Date: 20240918
  Receipt Date: 20240918
  Transmission Date: 20241016
  Serious: Yes (Death, Other)
  Sender: AMGEN
  Company Number: TR-AMGEN-TURSP2024184216

PATIENT
  Age: 17 Year
  Sex: Male

DRUGS (10)
  1. BEVACIZUMAB [Suspect]
     Active Substance: BEVACIZUMAB
     Indication: Metastases to bone
     Dosage: 10 MILLIGRAM/KILOGRAM, TOTAL OF FIVE CYCLES
     Route: 065
  2. BEVACIZUMAB [Suspect]
     Active Substance: BEVACIZUMAB
     Indication: Laryngeal cancer
  3. DOCETAXEL [Concomitant]
     Active Substance: DOCETAXEL\DOCETAXEL ANHYDROUS
     Dosage: 60 MILLIGRAM/SQ. METER, QD, ON DAY 1
  4. CISPLATIN [Concomitant]
     Active Substance: CISPLATIN
     Dosage: 25 MILLIGRAM/SQ. METER, QD, ON DAYS 1-3
  5. CISPLATIN [Concomitant]
     Active Substance: CISPLATIN
     Dosage: 35 MILLIGRAM/SQ. METER, QD, SIX CYCLES, WEEKLY
  6. IFOSFAMIDE [Concomitant]
     Active Substance: IFOSFAMIDE
     Dosage: 1.8 GRAM PER SQUARE METRE
  7. ETOPOSIDE [Concomitant]
     Active Substance: ETOPOSIDE
     Dosage: 150 MILLIGRAM/SQ. METER
  8. CARBOPLATIN [Concomitant]
     Active Substance: CARBOPLATIN
     Dosage: 250 MILLIGRAM/SQ. METER
  9. NIVOLUMAB [Concomitant]
     Active Substance: NIVOLUMAB
     Dosage: 3 MILLIGRAM/KILOGRAM, Q3WK
  10. VORINOSTAT [Concomitant]
     Active Substance: VORINOSTAT
     Dosage: 230 MILLIGRAM/SQ. METER, QD, MONDAY THROUGH FRIDAY EVERY 28 DAYS

REACTIONS (4)
  - Death [Fatal]
  - Laryngeal cancer metastatic [Unknown]
  - Off label use [Unknown]
  - Drug ineffective for unapproved indication [Unknown]
